FAERS Safety Report 4891874-9 (Version None)
Quarter: 2006Q1

REPORT INFORMATION
  Report Type: 
  Country: None (occurrence: None)
  Receive Date: 20060123
  Receipt Date: 20060116
  Transmission Date: 20060701
  Serious: Yes (Other)
  Sender: FDA-Public Use
  Company Number: 200512854GDS

PATIENT

DRUGS (2)
  1. APROTININ [Suspect]
     Indication: OPERATIVE HAEMORRHAGE
     Dosage: 2000000 KIU, ONCE, INTRAVENOUS; 500000 KIU, Q1HR, INTRAVENOUS
     Route: 042
  2. APROTININ [Suspect]
     Indication: PROPHYLAXIS
     Dosage: 2000000 KIU, ONCE, INTRAVENOUS; 500000 KIU, Q1HR, INTRAVENOUS
     Route: 042

REACTIONS (2)
  - CONFUSIONAL STATE [None]
  - POST PROCEDURAL COMPLICATION [None]
